FAERS Safety Report 8116773-0 (Version None)
Quarter: 2012Q1

REPORT INFORMATION
  Report Type: 
  Country: None (occurrence: None)
  Receive Date: 20120206
  Receipt Date: 20120130
  Transmission Date: 20120608
  Serious: Yes (Hospitalization, Other)
  Sender: FDA-Public Use
  Company Number: PHEH2009US17422

PATIENT
  Sex: Male

DRUGS (6)
  1. HYDREA [Concomitant]
  2. MORPHINE [Concomitant]
  3. FOLIC ACID [Concomitant]
  4. BLOOD TRANSFUSION, AUXILIARY PRODUCTS [Concomitant]
  5. EXJADE [Suspect]
     Indication: CHELATION THERAPY
     Route: 048
  6. EXJADE [Suspect]
     Indication: SERUM FERRITIN INCREASED
     Dosage: 2000 MG, QD
     Route: 048
     Dates: start: 20060214, end: 20091116

REACTIONS (12)
  - SICKLE CELL ANAEMIA WITH CRISIS [None]
  - ASPARTATE AMINOTRANSFERASE INCREASED [None]
  - PAIN [None]
  - HAEMOGLOBIN DECREASED [None]
  - RED CELL DISTRIBUTION WIDTH INCREASED [None]
  - LYMPHOMA [None]
  - PYREXIA [None]
  - DYSPNOEA [None]
  - CARDIOMEGALY [None]
  - HAEMATOCRIT DECREASED [None]
  - RED BLOOD CELL COUNT INCREASED [None]
  - BLOOD BILIRUBIN INCREASED [None]
